FAERS Safety Report 13673232 (Version 2)
Quarter: 2017Q3

REPORT INFORMATION
  Report Type: Other
  Country: IT (occurrence: IT)
  Receive Date: 20170621
  Receipt Date: 20170821
  Transmission Date: 20171127
  Serious: Yes (Death, Life-Threatening, Hospitalization, Other)
  Sender: FDA-Public Use
  Company Number: IT-MACLEODS PHARMACEUTICALS US LTD-MAC2017005175

PATIENT

DRUGS (2)
  1. AZATHIOPRINE. [Concomitant]
     Active Substance: AZATHIOPRINE
     Indication: PRODUCT USED FOR UNKNOWN INDICATION
     Dosage: 80 MG, UNK
     Route: 048
     Dates: start: 20170409, end: 20170424
  2. CLOPIDOGREL [Suspect]
     Active Substance: CLOPIDOGREL BISULFATE
     Indication: PRODUCT USED FOR UNKNOWN INDICATION
     Dosage: 75 MG, QD
     Route: 048
     Dates: start: 20170410, end: 20170425

REACTIONS (11)
  - Hepatic failure [Fatal]
  - Hepatitis acute [Fatal]
  - Liver function test abnormal [Fatal]
  - Hypoglycaemia [Unknown]
  - Pleural effusion [Unknown]
  - Lactic acidosis [Fatal]
  - Tachycardia [Unknown]
  - Hyperlactacidaemia [Fatal]
  - Dyspnoea [Unknown]
  - Chest discomfort [Unknown]
  - Cardiac arrest [Recovered/Resolved]

NARRATIVE: CASE EVENT DATE: 20170424
